FAERS Safety Report 23859447 (Version 2)
Quarter: 2024Q2

REPORT INFORMATION
  Report Type: Report from Study
  Country: US (occurrence: US)
  Receive Date: 20240515
  Receipt Date: 20240630
  Transmission Date: 20240715
  Serious: Yes (Congenital Anomaly, Other)
  Sender: FDA-Public Use
  Company Number: US-DRL-USA-CLI/USA/24/0007036

PATIENT
  Age: 34 Week
  Sex: Male
  Weight: 2 kg

DRUGS (2)
  1. DARUNAVIR [Suspect]
     Active Substance: DARUNAVIR
     Indication: HIV infection
     Route: 064
     Dates: start: 20210716
  2. DARUNAVIR [Suspect]
     Active Substance: DARUNAVIR
     Route: 064
     Dates: start: 20210716

REACTIONS (4)
  - Scrotal cyst [Recovered/Resolved]
  - Peritoneal cyst [Unknown]
  - Foetal exposure during pregnancy [Unknown]
  - Premature baby [Unknown]
